FAERS Safety Report 5386541-1 (Version None)
Quarter: 2007Q3

REPORT INFORMATION
  Report Type: 
  Country: None (occurrence: None)
  Receive Date: 20070713
  Receipt Date: 20070711
  Transmission Date: 20080115
  Serious: Yes (Hospitalization)
  Sender: FDA-Public Use
  Company Number: US-BAYER-200713856GDS

PATIENT
  Age: 47 Year
  Sex: Female

DRUGS (4)
  1. DACARBAZINE [Suspect]
     Indication: MALIGNANT MELANOMA
     Route: 042
     Dates: start: 20070613, end: 20070613
  2. IPILIMUMAB OR PLACEBO [Suspect]
     Indication: MALIGNANT MELANOMA
     Route: 042
     Dates: start: 20070613, end: 20070613
  3. GRANISETRON [Concomitant]
     Indication: DRUG USE FOR UNKNOWN INDICATION
     Route: 065
     Dates: start: 20070613
  4. DOMPERIDONE [Concomitant]
     Indication: DRUG USE FOR UNKNOWN INDICATION
     Route: 065
     Dates: start: 20070613

REACTIONS (2)
  - NEUTROPENIA [None]
  - THROMBOCYTOPENIA [None]
